FAERS Safety Report 8570891 (Version 2)
Quarter: 2014Q1

REPORT INFORMATION
  Report Type: Spontaneous
  Country: US (occurrence: US)
  Receive Date: 20120521
  Receipt Date: 20140331
  Transmission Date: 20141002
  Serious: Yes (Other)
  Sender: FDA-Public Use
  Company Number: US-BAYER-2012-049200

PATIENT
  Age: 20 Year
  Sex: Female

DRUGS (4)
  1. YASMIN [Suspect]
     Indication: ACNE
     Dosage: UNK
     Dates: start: 200604
  2. SULFAMETHOXAZOLE [Concomitant]
  3. PROCHLORPERAZINE [Concomitant]
     Dosage: 10 MG, UNK
  4. HYDROCODONE W/APAP [Concomitant]
     Dosage: 5/500

REACTIONS (6)
  - Cholecystitis [None]
  - Cholelithiasis [None]
  - Injury [None]
  - Pain [None]
  - Fear [None]
  - Anxiety [None]
